FAERS Safety Report 5412420-7 (Version None)
Quarter: 2007Q3

REPORT INFORMATION
  Report Type: 
  Country: None (occurrence: None)
  Receive Date: 20070813
  Receipt Date: 20070806
  Transmission Date: 20080115
  Serious: Yes (Hospitalization, Other)
  Sender: FDA-Public Use
  Company Number: PHBS2007IL13289

PATIENT
  Age: 25 Year
  Sex: Male
  Weight: 60 kg

DRUGS (2)
  1. CARBAMAZEPINE [Suspect]
     Dosage: 20 G, ONCE/SINGLE
     Route: 048
  2. PAROXETINE [Suspect]
     Dosage: 400 MG, ONCE/SINGLE
     Route: 048

REACTIONS (20)
  - ALANINE AMINOTRANSFERASE INCREASED [None]
  - BACTERIAL INFECTION [None]
  - BLOOD CREATINE PHOSPHOKINASE INCREASED [None]
  - DRUG LEVEL INCREASED [None]
  - GAMMA-GLUTAMYLTRANSFERASE INCREASED [None]
  - HEART RATE INCREASED [None]
  - HYPERNATRAEMIA [None]
  - INTENTIONAL OVERDOSE [None]
  - INTUBATION [None]
  - LEUKOCYTOSIS [None]
  - LOSS OF CONSCIOUSNESS [None]
  - MYDRIASIS [None]
  - OXYGEN SATURATION DECREASED [None]
  - PNEUMONIA ASPIRATION [None]
  - SEPSIS [None]
  - SOMNOLENCE [None]
  - THROMBOCYTOPENIA [None]
  - TONIC CONVULSION [None]
  - UNRESPONSIVE TO STIMULI [None]
  - VOMITING [None]
